FAERS Safety Report 10760730 (Version 1)
Quarter: 2015Q1

REPORT INFORMATION
  Report Type: Spontaneous
  Country: AU (occurrence: None)
  Receive Date: 20150202
  Receipt Date: 20150202
  Transmission Date: 20150721
  Serious: Yes (Hospitalization)
  Sender: FDA-Public Use
  Company Number: NSR_01801_2015

PATIENT
  Age: 32 Year
  Sex: Male

DRUGS (1)
  1. BACLOFEN. [Suspect]
     Active Substance: BACLOFEN
     Indication: PRODUCT USED FOR UNKNOWN INDICATION
     Dosage: DF (NOT THE PRESCRIBED AMOUNT)

REACTIONS (5)
  - Hypotension [None]
  - Depressed level of consciousness [None]
  - Delirium [None]
  - Overdose [None]
  - Tachycardia [None]
